FAERS Safety Report 8165429-7 (Version None)
Quarter: 2012Q1

REPORT INFORMATION
  Report Type: 
  Country: None (occurrence: None)
  Receive Date: 20120103
  Receipt Date: 20111102
  Transmission Date: 20120608
  Serious: No
  Sender: FDA-Public Use
  Company Number: AE-2011-002263

PATIENT
  Age: 55 Year
  Sex: Female
  Weight: 97.5234 kg

DRUGS (8)
  1. COPEGUS [Concomitant]
  2. PEGASYS [Concomitant]
  3. KLONOPIN [Concomitant]
  4. NEURONTIN [Concomitant]
  5. MULTI-VITAMINS [Concomitant]
  6. OXYCODONE HCL [Concomitant]
  7. PROZAC [Concomitant]
  8. INCIVEK [Suspect]
     Dosage: 2250 MG (750 MG, 1 IN 8 HR), ORAL
     Route: 048
     Dates: start: 20110915

REACTIONS (6)
  - NAUSEA [None]
  - PYREXIA [None]
  - URINARY TRACT INFECTION [None]
  - HEADACHE [None]
  - ANAEMIA [None]
  - VOMITING [None]
